FAERS Safety Report 7483182-7 (Version None)
Quarter: 2011Q2

REPORT INFORMATION
  Report Type: 
  Country: None (occurrence: None)
  Receive Date: 20110516
  Receipt Date: 20110506
  Transmission Date: 20111010
  Serious: Yes (Other)
  Sender: FDA-Public Use
  Company Number: US-RB-026156-11

PATIENT
  Age: 22 Year
  Sex: Female

DRUGS (1)
  1. SUBOXONE [Suspect]
     Indication: PRODUCT USED FOR UNKNOWN INDICATION
     Dosage: DOSAGE INFORMATION UNKNOWN
     Route: 065

REACTIONS (5)
  - OFF LABEL USE [None]
  - ROAD TRAFFIC ACCIDENT [None]
  - UNDERDOSE [None]
  - CONVULSION [None]
  - EXPOSURE TO TOXIC AGENT [None]
